FAERS Safety Report 22286101 (Version 1)
Quarter: 2023Q2

REPORT INFORMATION
  Report Type: Spontaneous
  Country: US (occurrence: US)
  Receive Date: 20230505
  Receipt Date: 20230505
  Transmission Date: 20230721
  Serious: No
  Sender: FDA-Public Use
  Company Number: US-BoehringerIngelheim-2023-BI-235426

PATIENT
  Age: 93 Year
  Sex: Male

DRUGS (27)
  1. JARDIANCE [Suspect]
     Active Substance: EMPAGLIFLOZIN
     Indication: Type 2 diabetes mellitus
     Dates: end: 20230203
  2. GLYXAMBI [Suspect]
     Active Substance: EMPAGLIFLOZIN\LINAGLIPTIN
     Indication: Type 2 diabetes mellitus
     Dosage: 10MG/5MG
     Dates: start: 20230203
  3. METHYLPREDNISOLONE [Suspect]
     Active Substance: METHYLPREDNISOLONE
     Indication: Gout
     Dosage: 4MG DAILY
     Dates: start: 20230417, end: 20230422
  4. GLIPIZIDE [Concomitant]
     Active Substance: GLIPIZIDE
     Indication: Type 2 diabetes mellitus
  5. TYLENOL [Concomitant]
     Active Substance: ACETAMINOPHEN
     Indication: Knee arthroplasty
  6. AMLODIPINE [Concomitant]
     Active Substance: AMLODIPINE BESYLATE
     Indication: Hypertension
  7. AMOXICILLIN [Concomitant]
     Active Substance: AMOXICILLIN
     Indication: Heart valve replacement
     Dosage: FOR DENTAL WORK
  8. VITAMIN C [Concomitant]
     Active Substance: ASCORBIC ACID
     Indication: Supplementation therapy
  9. ASPIRIN [Concomitant]
     Active Substance: ASPIRIN
     Indication: Heart valve replacement
  10. LIPITOR [Concomitant]
     Active Substance: ATORVASTATIN CALCIUM
     Indication: Hypertension
  11. CALCIUM CITRATE [Concomitant]
     Active Substance: CALCIUM CITRATE
     Indication: Supplementation therapy
  12. CARVEDILOL [Concomitant]
     Active Substance: CARVEDILOL
     Indication: Heart rate irregular
  13. CEPHALEXIN [Concomitant]
     Active Substance: CEPHALEXIN
     Indication: Urinary tract infection
  14. VITAMIN D [Concomitant]
     Active Substance: VITAMIN D NOS
     Indication: Supplementation therapy
  15. doxyzosin [Concomitant]
     Indication: Heart rate irregular
  16. FERROUS SULFATE [Concomitant]
     Active Substance: FERROUS SULFATE
     Indication: Supplementary motor area syndrome
  17. FISH OIL [Concomitant]
     Active Substance: FISH OIL
     Indication: Supplementary motor area syndrome
  18. DEXTROSE [Concomitant]
     Active Substance: DEXTROSE\DEXTROSE MONOHYDRATE
     Indication: Blood glucose abnormal
     Dosage: AS NEEDED
  19. ISOSORBIDE [Concomitant]
     Active Substance: ISOSORBIDE
     Indication: Hypertension
  20. VITAMINS [Concomitant]
     Active Substance: VITAMINS
     Indication: Supplementation therapy
  21. NYSTATIN [Concomitant]
     Active Substance: NYSTATIN
     Indication: Rash
     Dosage: AS NEEDED POWDER
  22. PROTONIX [Concomitant]
     Active Substance: PANTOPRAZOLE SODIUM
     Indication: Gastrooesophageal reflux disease
  23. POTASSIUM CHLORIDE [Concomitant]
     Active Substance: POTASSIUM CHLORIDE
     Indication: Supplementation therapy
  24. VITAMIN E [Concomitant]
     Active Substance: .ALPHA.-TOCOPHEROL
     Indication: Supplementation therapy
  25. DEMADEX [Concomitant]
     Active Substance: TORSEMIDE
     Indication: Chronic kidney disease
  26. ALLOPURINOL [Concomitant]
     Active Substance: ALLOPURINOL
     Indication: Gout
  27. JANUVIA [Concomitant]
     Active Substance: SITAGLIPTIN PHOSPHATE
     Indication: Type 2 diabetes mellitus
     Dates: end: 20230203

REACTIONS (1)
  - Blood glucose increased [Not Recovered/Not Resolved]

NARRATIVE: CASE EVENT DATE: 20230417
